FAERS Safety Report 5102577-X (Version None)
Quarter: 2006Q3

REPORT INFORMATION
  Report Type: 
  Country: None (occurrence: None)
  Receive Date: 20060908
  Receipt Date: 20060824
  Transmission Date: 20061208
  Serious: Yes (Hospitalization)
  Sender: FDA-Public Use
  Company Number: T06-JPN-00614-01

PATIENT
  Age: 80 Year
  Sex: Male
  Weight: 55.1 kg

DRUGS (5)
  1. MEMANTINE HCL [Suspect]
     Indication: DEMENTIA ALZHEIMER'S TYPE
     Dosage: 20 MG QD PO
     Route: 048
     Dates: start: 20050820, end: 20060130
  2. TOCOPHEROL NICOTINATE (TOCOPHEROL) [Concomitant]
  3. UBIDECARENONE [Concomitant]
  4. NAFTOPIDIL [Concomitant]
  5. SENNOSIDE [Concomitant]

REACTIONS (8)
  - AMNESIA [None]
  - CONDITION AGGRAVATED [None]
  - GAIT DISTURBANCE [None]
  - LUNG DISORDER [None]
  - PLEURISY [None]
  - PNEUMONIA [None]
  - TACHYCARDIA [None]
  - WHEEZING [None]
